FAERS Safety Report 5133716-2 (Version None)
Quarter: 2006Q4

REPORT INFORMATION
  Report Type: 
  Country: None (occurrence: None)
  Receive Date: 20061024
  Receipt Date: 20061013
  Transmission Date: 20070319
  Serious: Yes (Death)
  Sender: FDA-Public Use
  Company Number: TH-ROCHE-467438

PATIENT
  Sex: Female

DRUGS (1)
  1. VALCYTE [Suspect]
     Route: 048
     Dates: start: 20050903, end: 20051030

REACTIONS (2)
  - FUNGAL INFECTION [None]
  - HEPATIC INFECTION FUNGAL [None]
